FAERS Safety Report 17793767 (Version 1)
Quarter: 2020Q2

REPORT INFORMATION
  Report Type: Spontaneous
  Country: None (occurrence: US)
  Receive Date: 20200515
  Receipt Date: 20200515
  Transmission Date: 20200714
  Serious: Yes (Other)
  Sender: FDA-Public Use
  Company Number: US-UPSHER-SMITH LABORATORIES, LLC-2020USL00295

PATIENT
  Sex: Male

DRUGS (3)
  1. UNSPECIFIED MEDICATIONS [Suspect]
     Active Substance: UNSPECIFIED INGREDIENT
     Indication: TRAUMATIC LUNG INJURY
  2. AMIODARONE HYDROCHLORIDE. [Suspect]
     Active Substance: AMIODARONE HYDROCHLORIDE
     Indication: ATRIAL FIBRILLATION
     Dosage: UNK
     Route: 048
     Dates: start: 201409
  3. UNSPECIFIED MEDICATIONS [Suspect]
     Active Substance: UNSPECIFIED INGREDIENT
     Indication: LUNG DISORDER

REACTIONS (14)
  - Blindness [Unknown]
  - Lung disorder [Unknown]
  - Heart rate irregular [Unknown]
  - Unevaluable event [Unknown]
  - Asthenia [Unknown]
  - Nephropathy [Unknown]
  - Visual impairment [Unknown]
  - Cardiac failure congestive [Unknown]
  - Vitreous floaters [Unknown]
  - Halo vision [Unknown]
  - Dizziness [Unknown]
  - Coordination abnormal [Unknown]
  - Abdominal pain [Unknown]
  - Off label use [Unknown]

NARRATIVE: CASE EVENT DATE: 201409
